FAERS Safety Report 4995874-X (Version None)
Quarter: 2006Q2

REPORT INFORMATION
  Report Type: 
  Country: None (occurrence: None)
  Receive Date: 20060504
  Receipt Date: 20060314
  Transmission Date: 20061013
  Serious: Yes (Other)
  Sender: FDA-Public Use
  Company Number: JPKYO-S-20060017

PATIENT
  Age: 64 Year
  Sex: Female

DRUGS (5)
  1. NAVELBINE [Suspect]
     Indication: LUNG NEOPLASM MALIGNANT
     Dosage: 20 MG/M2 DAILY IV
     Route: 042
     Dates: start: 20040824, end: 20060201
  2. IRESSA [Concomitant]
  3. CARBOPLATIN [Concomitant]
  4. TAXOTERE [Concomitant]
  5. GEMZAR [Concomitant]

REACTIONS (1)
  - DEMENTIA ALZHEIMER'S TYPE [None]
